FAERS Safety Report 5488743-2 (Version None)
Quarter: 2007Q4

REPORT INFORMATION
  Report Type: 
  Country: None (occurrence: None)
  Receive Date: 20071017
  Receipt Date: 20071011
  Transmission Date: 20080405
  Serious: Yes (Hospitalization)
  Sender: FDA-Public Use
  Company Number: US-ROXANE LABORATORIES, INC-2007-BP-22581BP

PATIENT
  Sex: Male
  Weight: 84 kg

DRUGS (4)
  1. BIBR 1048 (DABIGATRAN ETEXILATE) [Suspect]
     Indication: CEREBROVASCULAR ACCIDENT PROPHYLAXIS
     Route: 048
     Dates: start: 20060930, end: 20071002
  2. BIBR 1048 (DABIGATRAN ETEXILATE) [Suspect]
     Indication: THROMBOSIS PROPHYLAXIS
  3. LISINOPRIL [Suspect]
     Indication: HYPERTENSION
     Route: 048
  4. DIGOXIN [Suspect]
     Indication: ATRIAL FIBRILLATION
     Route: 048
     Dates: start: 20060801

REACTIONS (5)
  - ANAEMIA [None]
  - RENAL FAILURE ACUTE [None]
  - RENAL TUBULAR NECROSIS [None]
  - THROMBOCYTOPENIA [None]
  - TOXIC ENCEPHALOPATHY [None]
